FAERS Safety Report 25226881 (Version 1)
Quarter: 2025Q2

REPORT INFORMATION
  Report Type: Spontaneous
  Country: CA (occurrence: CA)
  Receive Date: 20250422
  Receipt Date: 20250422
  Transmission Date: 20250717
  Serious: Yes (Hospitalization, Other)
  Sender: BRACCO
  Company Number: CA-BRACCO-2025CA02507

PATIENT
  Age: 73 Year
  Sex: Male

DRUGS (1)
  1. PROHANCE [Suspect]
     Active Substance: GADOTERIDOL
     Indication: Magnetic resonance imaging hepatobiliary
     Route: 042
     Dates: start: 20250414, end: 20250414

REACTIONS (3)
  - Psoriasis [Unknown]
  - Hypoaesthesia [Unknown]
  - Headache [Unknown]

NARRATIVE: CASE EVENT DATE: 20250414
